FAERS Safety Report 7734872-X (Version None)
Quarter: 2011Q3

REPORT INFORMATION
  Report Type: 
  Country: None (occurrence: None)
  Receive Date: 20110907
  Receipt Date: 20110718
  Transmission Date: 20111222
  Serious: Yes (Other)
  Sender: FDA-Public Use
  Company Number: US-TYCO HEALTHCARE/MALLINCKRODT-T201101444

PATIENT
  Sex: Male

DRUGS (8)
  1. OXYCODONE HCL [Concomitant]
     Indication: BREAKTHROUGH PAIN
     Dosage: 15-22 MG QD AS NEEDED
     Route: 048
  2. EXALGO [Suspect]
     Dosage: 1 - 16 MG TABLET DAILY
     Dates: start: 20110101
  3. LORAZEPAM [Concomitant]
     Indication: ANXIETY
     Dosage: 0.5 MG BID
     Route: 048
  4. EXALGO [Suspect]
     Indication: PAIN
     Dosage: 1 - 16 MG TABLET AND 1 - 8 MG TABLET DAILY, 24 MG TOTAL
     Dates: start: 20110713
  5. SERZONE [Concomitant]
     Indication: DEPRESSION
     Dosage: 450 MG AT NIGHT
     Route: 048
  6. EXALGO [Suspect]
     Indication: TRIGEMINAL NEURALGIA
     Dosage: 1 - 12 MG TABLET DAILY
     Route: 048
     Dates: start: 20110201
  7. TIAZAC [Concomitant]
     Indication: HYPERTENSION
     Dosage: 360 MG AT NIGHT
     Route: 048
  8. DILAUDID [Concomitant]
     Dosage: 8 MG Q6-8 HRS

REACTIONS (14)
  - APNOEA [None]
  - DISTURBANCE IN ATTENTION [None]
  - DIZZINESS [None]
  - DRUG INEFFECTIVE [None]
  - PALPITATIONS [None]
  - DYSARTHRIA [None]
  - HYPERSOMNIA [None]
  - IMPAIRED DRIVING ABILITY [None]
  - DRUG EFFECT DECREASED [None]
  - CONVULSION [None]
  - CONFUSIONAL STATE [None]
  - SLEEP DISORDER [None]
  - COORDINATION ABNORMAL [None]
  - FEELING ABNORMAL [None]
